FAERS Safety Report 5032950-X (Version None)
Quarter: 2006Q2

REPORT INFORMATION
  Report Type: 
  Country: None (occurrence: None)
  Receive Date: 20060622
  Receipt Date: 20060616
  Transmission Date: 20061013
  Serious: Yes (Hospitalization)
  Sender: FDA-Public Use
  Company Number: US-KINGPHARMUSA00001-K200600780

PATIENT
  Age: 55 Year
  Sex: Male

DRUGS (3)
  1. ALTACE [Suspect]
     Dosage: 5 MG, QD
     Route: 048
     Dates: end: 20060414
  2. FUROSEMIDE [Suspect]
     Indication: ACUTE PULMONARY OEDEMA
     Dosage: 80 MG, QD
     Route: 048
     Dates: start: 20060411, end: 20060414
  3. ALDACTONE [Suspect]
     Indication: ACUTE PULMONARY OEDEMA
     Dosage: 50 MG, QD
     Route: 048
     Dates: start: 20060411, end: 20060414

REACTIONS (4)
  - BLOOD CREATININE INCREASED [None]
  - DRUG INTERACTION [None]
  - PULMONARY OEDEMA [None]
  - RENAL FAILURE ACUTE [None]
